FAERS Safety Report 7707672-4 (Version None)
Quarter: 2011Q3

REPORT INFORMATION
  Report Type: 
  Country: None (occurrence: None)
  Receive Date: 20110824
  Receipt Date: 20110816
  Transmission Date: 20111222
  Serious: Yes (Hospitalization)
  Sender: FDA-Public Use
  Company Number: PHHY2011US74262

PATIENT
  Age: 43 Year
  Sex: Female

DRUGS (1)
  1. PROPRANOLOL [Suspect]
     Indication: MIGRAINE
     Dosage: 60 MG, UNK

REACTIONS (10)
  - CONGESTIVE CARDIOMYOPATHY [None]
  - DYSPNOEA [None]
  - SINUS TACHYCARDIA [None]
  - PALPITATIONS [None]
  - CHEST DISCOMFORT [None]
  - PRESYNCOPE [None]
  - HYPOTENSION [None]
  - HYPERHIDROSIS [None]
  - NAUSEA [None]
  - VOMITING [None]
